FAERS Safety Report 24110722 (Version 1)
Quarter: 2024Q3

REPORT INFORMATION
  Report Type: Spontaneous
  Country: US (occurrence: None)
  Receive Date: 20240718
  Receipt Date: 20240718
  Transmission Date: 20241016
  Serious: Yes (Death, Hospitalization)
  Sender: Public
  Company Number: None

PATIENT
  Age: 57 Year
  Sex: Female

DRUGS (1)
  1. WINREVAIR [Suspect]
     Active Substance: SOTATERCEPT-CSRK
     Dosage: OTHER QUANTITY : INJECT 0.7MLS ;?
     Route: 058

REACTIONS (2)
  - Cardiac failure [None]
  - Renal failure [None]

NARRATIVE: CASE EVENT DATE: 20240717
